FAERS Safety Report 17419100 (Version 2)
Quarter: 2020Q1

REPORT INFORMATION
  Report Type: Spontaneous
  Country: MX (occurrence: MX)
  Receive Date: 20200214
  Receipt Date: 20200305
  Transmission Date: 20200409
  Serious: Yes (Other)
  Sender: FDA-Public Use
  Company Number: MX-GILEAD-2020-0450261

PATIENT
  Age: 77 Year
  Sex: Female

DRUGS (1)
  1. EPCLUSA [Suspect]
     Active Substance: SOFOSBUVIR\VELPATASVIR
     Indication: HEPATITIS C
     Dosage: UNK
     Route: 065
     Dates: start: 20191210

REACTIONS (2)
  - Oedema peripheral [Recovering/Resolving]
  - Hepatic failure [Unknown]

NARRATIVE: CASE EVENT DATE: 20200127
